FAERS Safety Report 6284627-0 (Version None)
Quarter: 2009Q3

REPORT INFORMATION
  Report Type: 
  Country: None (occurrence: None)
  Receive Date: 20090723
  Receipt Date: 20090715
  Transmission Date: 20100115
  Serious: Yes (Death, Hospitalization)
  Sender: FDA-Public Use
  Company Number: 2009AL002545

PATIENT
  Age: 70 Year
  Sex: Male

DRUGS (17)
  1. DIGOXIN [Suspect]
     Dosage: 0.25 MG DAILY PO
     Route: 048
     Dates: start: 20070222, end: 20080213
  2. LASIX [Concomitant]
  3. HYDRALAZINE HCL [Concomitant]
  4. ISOSORBIDE DINITRATE [Concomitant]
  5. CAPTOPRIL [Concomitant]
  6. FUROSEMIDE [Concomitant]
  7. METOLAZONE [Concomitant]
  8. POTASSIUM CHLORIDE [Concomitant]
  9. MULTIVITAMINN [Concomitant]
  10. NOVOLIN R [Concomitant]
  11. IMDUR [Concomitant]
  12. CAPOTEN [Concomitant]
  13. ASPIRIN [Concomitant]
  14. ZAROXOLYN [Concomitant]
  15. KAY CIEL DURA-TABS [Concomitant]
  16. UNASYN [Concomitant]
  17. COLACE [Concomitant]

REACTIONS (6)
  - ASCITES [None]
  - ASTHENIA [None]
  - CARDIAC FAILURE CONGESTIVE [None]
  - CHEST DISCOMFORT [None]
  - ECONOMIC PROBLEM [None]
  - MULTIPLE INJURIES [None]
